FAERS Safety Report 11127526 (Version 1)
Quarter: 2015Q2

REPORT INFORMATION
  Report Type: Spontaneous
  Country: US (occurrence: None)
  Receive Date: 20150520
  Receipt Date: 20150520
  Transmission Date: 20150821
  Serious: No
  Sender: FDA-Public Use
  Company Number: None

PATIENT
  Age: 50 Year
  Sex: Female

DRUGS (9)
  1. AMPYRA [Suspect]
     Active Substance: DALFAMPRIDINE
     Indication: MULTIPLE SCLEROSIS
     Route: 048
     Dates: start: 201005
  2. HYDRALAZINE [Concomitant]
     Active Substance: HYDRALAZINE HYDROCHLORIDE
  3. HYDROCORTISONE CREAM [Concomitant]
     Active Substance: HYDROCORTISONE
  4. BACLOFEN. [Concomitant]
     Active Substance: BACLOFEN
  5. QUETIAPINE [Concomitant]
     Active Substance: QUETIAPINE
  6. ASPIRIN. [Concomitant]
     Active Substance: ASPIRIN
  7. DSS [Concomitant]
     Active Substance: DOCUSATE SODIUM
  8. OXYBUTYNIN [Concomitant]
     Active Substance: OXYBUTYNIN
  9. LISINOPRIL. [Concomitant]
     Active Substance: LISINOPRIL

REACTIONS (1)
  - Laboratory test abnormal [None]

NARRATIVE: CASE EVENT DATE: 20150115
